FAERS Safety Report 9996089 (Version 1)
Quarter: 2014Q1

REPORT INFORMATION
  Report Type: Spontaneous
  Country: US (occurrence: US)
  Receive Date: 20140311
  Receipt Date: 20140311
  Transmission Date: 20141002
  Serious: Yes (Life-Threatening, Other)
  Sender: FDA-Public Use
  Company Number: US-ACTAVIS-2014-03947

PATIENT
  Age: 42 Year
  Sex: Male

DRUGS (3)
  1. ARIPIPRAZOLE (UNKNOWN) [Suspect]
     Indication: SCHIZOPHRENIA
     Dosage: 2.5 MG, DAILY
     Route: 048
  2. ARIPIPRAZOLE (UNKNOWN) [Suspect]
     Indication: DELIRIUM
  3. FAMOTIDINE (WATSON LABORATORIES) [Suspect]
     Indication: PRODUCT USED FOR UNKNOWN INDICATION
     Dosage: 20 MG, DAILY
     Route: 042

REACTIONS (2)
  - Torsade de pointes [Recovered/Resolved]
  - Cardiac arrest [Recovered/Resolved]
